FAERS Safety Report 19912418 (Version 2)
Quarter: 2021Q4

REPORT INFORMATION
  Report Type: Spontaneous
  Country: AU (occurrence: AU)
  Receive Date: 20211004
  Receipt Date: 20211013
  Transmission Date: 20220303
  Serious: Yes (Hospitalization)
  Sender: FDA-Public Use
  Company Number: AU-TASMAN PHARMA, INC.-2021TSM00284

PATIENT
  Sex: Male

DRUGS (13)
  1. CLOZAPINE [Suspect]
     Active Substance: CLOZAPINE
     Dosage: 200 MG
     Dates: start: 20210511, end: 20210517
  2. CLOZAPINE [Suspect]
     Active Substance: CLOZAPINE
     Dosage: 300 MG
     Dates: start: 20210518, end: 20210524
  3. CLOZAPINE [Suspect]
     Active Substance: CLOZAPINE
     Dosage: 450 MG
     Dates: start: 20210525, end: 20210531
  4. CLOZAPINE [Suspect]
     Active Substance: CLOZAPINE
     Dosage: 550 MG
     Dates: start: 20210601, end: 20210607
  5. CLOZAPINE [Suspect]
     Active Substance: CLOZAPINE
     Dosage: 650 MG
     Dates: start: 20210608, end: 20210614
  6. CLOZAPINE [Suspect]
     Active Substance: CLOZAPINE
     Dosage: 700 MG
     Dates: start: 20210615, end: 20210621
  7. CLOZAPINE [Suspect]
     Active Substance: CLOZAPINE
     Dosage: 700 MG
     Dates: start: 20210804, end: 20210831
  8. CLOZAPINE [Suspect]
     Active Substance: CLOZAPINE
     Dosage: 700 MG
     Dates: start: 20210622, end: 20210706
  9. CLOZAPINE [Suspect]
     Active Substance: CLOZAPINE
     Dosage: 400 MG
     Dates: start: 20210707, end: 20210720
  10. CLOZAPINE [Suspect]
     Active Substance: CLOZAPINE
     Dosage: 700 MG
     Dates: start: 20210721, end: 20210803
  11. CLOZAPINE [Suspect]
     Active Substance: CLOZAPINE
     Dosage: 700 MG
     Dates: start: 20210901, end: 20210916
  12. CLOZAPINE [Suspect]
     Active Substance: CLOZAPINE
     Dosage: 25 MG
     Dates: start: 20210930
  13. CLOZAPINE [Suspect]
     Active Substance: CLOZAPINE
     Dosage: 125 MG

REACTIONS (4)
  - Hospitalisation [Recovered/Resolved]
  - Treatment noncompliance [Unknown]
  - Intentional product use issue [Recovered/Resolved]
  - Unevaluable event [Unknown]

NARRATIVE: CASE EVENT DATE: 20210908
